FAERS Safety Report 11287233 (Version 1)
Quarter: 2015Q3

REPORT INFORMATION
  Report Type: Spontaneous
  Country: US (occurrence: None)
  Receive Date: 20150720
  Receipt Date: 20150720
  Transmission Date: 20151125
  Serious: No
  Sender: FDA-Public Use
  Company Number: None

PATIENT
  Age: 49 Year
  Sex: Female
  Weight: 71.22 kg

DRUGS (2)
  1. NORCO [Suspect]
     Active Substance: ACETAMINOPHEN\HYDROCODONE BITARTRATE
     Indication: MYALGIA
     Route: 048
     Dates: start: 20150715, end: 20150717
  2. FISH OIL [Concomitant]
     Active Substance: FISH OIL

REACTIONS (5)
  - Abdominal discomfort [None]
  - Product formulation issue [None]
  - Somnolence [None]
  - Inadequate analgesia [None]
  - Headache [None]

NARRATIVE: CASE EVENT DATE: 20150715
